FAERS Safety Report 6076242-9 (Version None)
Quarter: 2009Q1

REPORT INFORMATION
  Report Type: 
  Country: None (occurrence: None)
  Receive Date: 20090209
  Receipt Date: 20090128
  Transmission Date: 20090719
  Serious: Yes (Hospitalization)
  Sender: FDA-Public Use
  Company Number: 1-17410220

PATIENT
  Sex: Female
  Weight: 64.8644 kg

DRUGS (6)
  1. PHENYTOIN [Suspect]
     Indication: GRAND MAL CONVULSION
     Dosage: 300MG, FREQUENCY NOT REPORTED, ORAL
     Route: 048
  2. PHENYTOIN [Suspect]
     Indication: GRAND MAL CONVULSION
     Dosage: 1000MG, ONCE, INTRAVENOUS
     Route: 042
  3. DESIPRAMINE HCL [Concomitant]
  4. TRIHEXYPHENIDYL [Concomitant]
  5. OXAZEPAM [Concomitant]
  6. PROPRANOLOL [Concomitant]

REACTIONS (5)
  - ATAXIA [None]
  - DIZZINESS [None]
  - DRUG INTERACTION [None]
  - DRUG TOXICITY [None]
  - NYSTAGMUS [None]
